FAERS Safety Report 22288847 (Version 1)
Quarter: 2023Q2

REPORT INFORMATION
  Report Type: Spontaneous
  Country: US (occurrence: US)
  Receive Date: 20230505
  Receipt Date: 20230505
  Transmission Date: 20230722
  Serious: No
  Sender: FDA-Public Use
  Company Number: US-APOTEX-2023AP007087

PATIENT
  Sex: Female

DRUGS (2)
  1. BRIMONIDINE TARTRATE [Suspect]
     Active Substance: BRIMONIDINE TARTRATE
     Indication: Product used for unknown indication
     Dosage: 1 GTT DROPS, TID (1 DROP IN ONE EYE)
     Route: 047
  2. BRIMONIDINE TARTRATE [Suspect]
     Active Substance: BRIMONIDINE TARTRATE
     Dosage: 1 GTT DROPS, TID (1 DROP IN ONE EYE)
     Route: 047

REACTIONS (4)
  - Eye infection [Unknown]
  - Product closure issue [Unknown]
  - Visual impairment [Not Recovered/Not Resolved]
  - Eye irritation [Unknown]

NARRATIVE: CASE EVENT DATE: 20230101
